FAERS Safety Report 10261177 (Version 19)
Quarter: 2015Q3

REPORT INFORMATION
  Report Type: Report from Study
  Country: CA (occurrence: CA)
  Receive Date: 20140626
  Receipt Date: 20150811
  Transmission Date: 20151125
  Serious: Yes (Death, Hospitalization, Other)
  Sender: FDA-Public Use
  Company Number: CA-ROCHE-1424897

PATIENT
  Age: 66 Year
  Sex: Male

DRUGS (6)
  1. PLAQUENIL [Concomitant]
     Active Substance: HYDROXYCHLOROQUINE SULFATE
  2. FOLIC ACID. [Concomitant]
     Active Substance: FOLIC ACID
  3. CILAZAPRIL [Concomitant]
     Active Substance: CILAZAPRIL ANHYDROUS
  4. ACTEMRA [Suspect]
     Active Substance: TOCILIZUMAB
     Indication: RHEUMATOID ARTHRITIS
     Route: 042
     Dates: start: 20140530
  5. ARAVA [Concomitant]
     Active Substance: LEFLUNOMIDE
     Dosage: CURRENTLY ON HOLD
     Route: 065
  6. ENBREL [Concomitant]
     Active Substance: ETANERCEPT

REACTIONS (15)
  - Dyspnoea [Not Recovered/Not Resolved]
  - Blood pressure fluctuation [Unknown]
  - Death [Fatal]
  - Fall [Unknown]
  - Furuncle [Unknown]
  - Malaise [Unknown]
  - Vomiting [Unknown]
  - Heart rate decreased [Unknown]
  - Device related infection [Recovered/Resolved]
  - Back pain [Not Recovered/Not Resolved]
  - Joint dislocation [Unknown]
  - Blood pressure increased [Unknown]
  - Infusion related reaction [Unknown]
  - Gastrointestinal disorder [Unknown]
  - Blood iron decreased [Not Recovered/Not Resolved]

NARRATIVE: CASE EVENT DATE: 201406
